FAERS Safety Report 18677001 (Version 1)
Quarter: 2020Q4

REPORT INFORMATION
  Report Type: Spontaneous
  Country: FR (occurrence: FR)
  Receive Date: 20201229
  Receipt Date: 20201229
  Transmission Date: 20210114
  Serious: Yes (Other)
  Sender: FDA-Public Use
  Company Number: FR-MYLANLABS-2020M1104156

PATIENT
  Age: 41 Year
  Sex: Female
  Weight: 56 kg

DRUGS (2)
  1. NORADRENALINE MYLAN [Suspect]
     Active Substance: NOREPINEPHRINE\NOREPINEPHRINE BITARTRATE
     Indication: PRODUCT USED FOR UNKNOWN INDICATION
     Dosage: 1 DOSAGE FORM, TOTAL
     Route: 042
     Dates: start: 20201118, end: 20201118
  2. DEXAMETHASONE. [Concomitant]
     Active Substance: DEXAMETHASONE
     Indication: BREAST RECONSTRUCTION
     Dosage: DRUG NOT ADMINISTERED
     Route: 042

REACTIONS (6)
  - Hypertension [Recovered/Resolved]
  - Product label confusion [Recovered/Resolved]
  - Wrong product administered [Recovered/Resolved]
  - Troponin I increased [Recovered/Resolved]
  - Ventricular tachycardia [Recovered/Resolved]
  - Ventricular extrasystoles [Recovered/Resolved]

NARRATIVE: CASE EVENT DATE: 20201118
